FAERS Safety Report 11854968 (Version 1)
Quarter: 2015Q4

REPORT INFORMATION
  Report Type: Spontaneous
  Country: US (occurrence: US)
  Receive Date: 20151221
  Receipt Date: 20151221
  Transmission Date: 20160305
  Serious: Yes (Other)
  Sender: FDA-Public Use
  Company Number: US-BAYER-2015-486405

PATIENT

DRUGS (2)
  1. ALEVE [Suspect]
     Active Substance: NAPROXEN SODIUM
     Dosage: UNK
     Dates: start: 20151209, end: 20151209
  2. ALEVE [Suspect]
     Active Substance: NAPROXEN SODIUM
     Dosage: UNK

REACTIONS (2)
  - Myocardial infarction [None]
  - Drug ineffective [None]

NARRATIVE: CASE EVENT DATE: 20151209
